FAERS Safety Report 10737461 (Version 5)
Quarter: 2015Q3

REPORT INFORMATION
  Report Type: Other
  Country: US (occurrence: US)
  Receive Date: 20150126
  Receipt Date: 20150703
  Transmission Date: 20151125
  Serious: Yes (Other)
  Sender: FDA-Public Use
  Company Number: US-ACORDA-ACO_108555_2015

PATIENT
  Age: 34 Year
  Sex: Male

DRUGS (4)
  1. AMPYRA [Suspect]
     Active Substance: DALFAMPRIDINE
     Indication: GAIT DISTURBANCE
     Dosage: 10 MG, BID
     Route: 065
     Dates: start: 2013
  2. LYRICA [Concomitant]
     Active Substance: PREGABALIN
     Indication: PRODUCT USED FOR UNKNOWN INDICATION
     Dosage: 150 MG, BID
     Route: 065
  3. VITAMIN D [Concomitant]
     Active Substance: CHOLECALCIFEROL
     Indication: PRODUCT USED FOR UNKNOWN INDICATION
     Dosage: 2000 IU, QD
     Route: 065
  4. DIMETHYL FUMARATE [Suspect]
     Active Substance: DIMETHYL FUMARATE
     Indication: PRODUCT USED FOR UNKNOWN INDICATION
     Dosage: 240 MG, BID
     Route: 065

REACTIONS (3)
  - Seizure [Recovered/Resolved]
  - Hot flush [Unknown]
  - Flushing [Unknown]

NARRATIVE: CASE EVENT DATE: 201405
